FAERS Safety Report 25903513 (Version 2)
Quarter: 2025Q4

REPORT INFORMATION
  Report Type: Spontaneous
  Country: BR (occurrence: BR)
  Receive Date: 20251009
  Receipt Date: 20251112
  Transmission Date: 20260118
  Serious: Yes (Death)
  Sender: ABBVIE
  Company Number: BR-ABBOTT-2025A-1403037

PATIENT
  Age: 22 Year
  Sex: Female
  Weight: 46 kg

DRUGS (4)
  1. CREON [Suspect]
     Active Substance: PANCRELIPASE AMYLASE\PANCRELIPASE LIPASE\PANCRELIPASE PROTEASE
     Indication: Pancreatic disorder
     Dosage: 2 CAPSULES OF 25,000 IU 3 TIMES A DAY
     Route: 048
  2. CREON [Suspect]
     Active Substance: PANCRELIPASE AMYLASE\PANCRELIPASE LIPASE\PANCRELIPASE PROTEASE
     Indication: Pancreatic disorder
     Dosage: 2 CAPSULES OF 25,000 IU 3 TIMES A DAY
     Route: 048
  3. CREON [Suspect]
     Active Substance: PANCRELIPASE AMYLASE\PANCRELIPASE LIPASE\PANCRELIPASE PROTEASE
     Indication: Pancreatic disorder
     Dosage: 2 CAPSULES OF 25,000 IU 3 TIMES A DAY
     Route: 048
  4. CREON [Suspect]
     Active Substance: PANCRELIPASE AMYLASE\PANCRELIPASE LIPASE\PANCRELIPASE PROTEASE
     Indication: Pancreatic disorder
     Dosage: 2 CAPSULES OF 25,000 IU 3 TIMES A DAY
     Route: 048

REACTIONS (3)
  - Disease progression [Fatal]
  - Asthenia [Unknown]
  - Treatment noncompliance [Unknown]
